FAERS Safety Report 19304391 (Version 1)
Quarter: 2021Q2

REPORT INFORMATION
  Report Type: Spontaneous
  Country: US (occurrence: US)
  Receive Date: 20210526
  Receipt Date: 20210526
  Transmission Date: 20210717
  Serious: No
  Sender: FDA-Public Use
  Company Number: US-ASTRAZENECA-2021A413724

PATIENT
  Sex: Male

DRUGS (1)
  1. TAGRISSO [Suspect]
     Active Substance: OSIMERTINIB
     Route: 048

REACTIONS (9)
  - Nail disorder [Unknown]
  - Onychoclasis [Unknown]
  - Muscle spasms [Unknown]
  - Rash [Unknown]
  - Stomatitis [Unknown]
  - Diarrhoea [Unknown]
  - Fatigue [Unknown]
  - Insomnia [Unknown]
  - Acne [Unknown]
